FAERS Safety Report 24004454 (Version 1)
Quarter: 2024Q2

REPORT INFORMATION
  Report Type: Spontaneous
  Country: US (occurrence: US)
  Receive Date: 20240624
  Receipt Date: 20240624
  Transmission Date: 20240716
  Serious: No
  Sender: FDA-Public Use
  Company Number: US-TEVA-VS-3209204

PATIENT
  Age: 46 Year
  Sex: Male
  Weight: 108.86 kg

DRUGS (1)
  1. UZEDY [Suspect]
     Active Substance: RISPERIDONE
     Indication: Product used for unknown indication
     Dosage: 75 MG / 0.21 ML
     Route: 030
     Dates: start: 20231121

REACTIONS (9)
  - Attention deficit hyperactivity disorder [Unknown]
  - Fatigue [Unknown]
  - Micturition urgency [Unknown]
  - Ear pain [Unknown]
  - Product use issue [Unknown]
  - Accident [Unknown]
  - Pain in extremity [Unknown]
  - Photophobia [Unknown]
  - Sinus congestion [Unknown]

NARRATIVE: CASE EVENT DATE: 20231121
